FAERS Safety Report 5821297-7 (Version None)
Quarter: 2008Q3

REPORT INFORMATION
  Report Type: 
  Country: None (occurrence: None)
  Receive Date: 20080722
  Receipt Date: 20080722
  Transmission Date: 20090109
  Serious: Yes (Other)
  Sender: FDA-Public Use
  Company Number: None

PATIENT
  Age: 49 Year
  Sex: Female
  Weight: 52.1637 kg

DRUGS (1)
  1. PAROXETINE CR  25 MG MYLAN [Suspect]
     Indication: ADRENAL DISORDER
     Dosage: 1 DAILY PO
     Route: 048
     Dates: start: 20080625, end: 20080721

REACTIONS (3)
  - ANXIETY [None]
  - MEDICATION RESIDUE [None]
  - PHARMACEUTICAL PRODUCT COMPLAINT [None]
